FAERS Safety Report 10191177 (Version 1)
Quarter: 2014Q2

REPORT INFORMATION
  Report Type: Spontaneous
  Country: US (occurrence: US)
  Receive Date: 20140523
  Receipt Date: 20140523
  Transmission Date: 20141212
  Serious: No
  Sender: FDA-Public Use
  Company Number: US-BAUSCH-BL-2013-004248

PATIENT
  Age: 81 Year
  Sex: Female

DRUGS (4)
  1. IPRATROPIUM BROMIDE NASAL SOLUTION 0.06% [Suspect]
     Indication: SINUSITIS
     Dosage: 2 SPRAYS; TWICE A DAY; RIGHT NOSTRIL
     Route: 045
     Dates: start: 20130710, end: 20130714
  2. IPRATROPIUM BROMIDE NASAL SOLUTION 0.06% [Suspect]
     Indication: RHINITIS
     Dosage: 2 SPRAYS; TWICE A DAY; LEFT NOSTRIL
     Route: 045
     Dates: start: 20130710, end: 20130714
  3. IPRATROPIUM BROMIDE NASAL SOLUTION 0.06% [Suspect]
     Dosage: 1 SPRAY; DAILY; RIGHT NOSTRIL
     Route: 045
     Dates: start: 20130715
  4. IPRATROPIUM BROMIDE NASAL SOLUTION 0.06% [Suspect]
     Dosage: 1 SPRAY; DAILY; LEFT NOSTRIL
     Route: 045
     Dates: start: 20130715

REACTIONS (3)
  - Dry eye [Not Recovered/Not Resolved]
  - Oropharyngeal pain [Not Recovered/Not Resolved]
  - Dysphonia [Not Recovered/Not Resolved]
